FAERS Safety Report 16529951 (Version 1)
Quarter: 2019Q3

REPORT INFORMATION
  Report Type: Report from Study
  Country: IT (occurrence: IT)
  Receive Date: 20190704
  Receipt Date: 20190704
  Transmission Date: 20191004
  Serious: Yes (Other)
  Sender: FDA-Public Use
  Company Number: IT-AUROBINDO-AUR-APL-2019-037467

PATIENT

DRUGS (3)
  1. LETROZOLE. [Suspect]
     Active Substance: LETROZOLE
     Indication: BREAST CANCER
     Dosage: Z 4 MG IN INTRAVENOUS INFUSION FOR 15 MIN AT THE BEGINNING OF TREATMENT AND EVERY 6 MONTHS PLUS L 2.
     Route: 042
  2. ZOLEDRONIC ACID SOLUTION FOR INFUSION [Suspect]
     Active Substance: ZOLEDRONIC ACID
     Indication: BREAST CANCER
     Dosage: Z 4 MG IN INTRAVENOUS INFUSION FOR 15 MIN AT THE BEGINNING OF TREATMENT AND EVERY 6 MONTHS PLUS L 2.
     Route: 042
  3. TRIPTORELIN [Suspect]
     Active Substance: TRIPTORELIN
     Indication: BREAST CANCER
     Dosage: 3.75 MILLIGRAM
     Route: 065

REACTIONS (1)
  - Disease progression [Unknown]
